FAERS Safety Report 7066453-8 (Version None)
Quarter: 2010Q4

REPORT INFORMATION
  Report Type: 
  Country: None (occurrence: None)
  Receive Date: 20101027
  Receipt Date: 20091118
  Transmission Date: 20110411
  Serious: No
  Sender: FDA-Public Use
  Company Number: US-WYE-H12235209

PATIENT
  Sex: Female

DRUGS (1)
  1. PREMPRO [Suspect]
     Indication: HORMONE REPLACEMENT THERAPY
     Dosage: 0.625MG
     Route: 048
     Dates: start: 20091111

REACTIONS (3)
  - DYSPNOEA [None]
  - HEART RATE INCREASED [None]
  - TREMOR [None]
